FAERS Safety Report 4386530-X (Version None)
Quarter: 2004Q2

REPORT INFORMATION
  Report Type: 
  Country: None (occurrence: None)
  Receive Date: 20040629
  Receipt Date: 20040621
  Transmission Date: 20050107
  Serious: Yes (Disabling)
  Sender: FDA-Public Use
  Company Number: 200411914EU

PATIENT
  Age: 26 Year
  Sex: Female

DRUGS (5)
  1. KETEK [Suspect]
     Indication: SINUSITIS
     Route: 048
     Dates: start: 20040510, end: 20040510
  2. NASONEX [Concomitant]
     Indication: RHINITIS
     Route: 048
     Dates: start: 20040427
  3. BRICANYL [Concomitant]
     Indication: RESPIRATORY DISORDER
     Route: 055
     Dates: start: 20040427
  4. PULMICORT [Concomitant]
     Indication: ASTHMA
     Route: 055
     Dates: start: 20040510
  5. LIPITOR [Concomitant]
     Indication: TYPE IIA HYPERLIPIDAEMIA
     Route: 048
     Dates: start: 20020101

REACTIONS (3)
  - DIZZINESS [None]
  - NAUSEA [None]
  - VISUAL FIELD DEFECT [None]
